FAERS Safety Report 13752570 (Version 4)
Quarter: 2017Q4

REPORT INFORMATION
  Report Type: Spontaneous
  Country: US (occurrence: US)
  Receive Date: 20170713
  Receipt Date: 20171003
  Transmission Date: 20180320
  Serious: Yes (Hospitalization, Other)
  Sender: FDA-Public Use
  Company Number: PHEH2017US021291

PATIENT
  Age: 66 Year
  Sex: Female

DRUGS (3)
  1. AFINITOR [Suspect]
     Active Substance: EVEROLIMUS
     Indication: RENAL CANCER
  2. AFINITOR [Suspect]
     Active Substance: EVEROLIMUS
     Indication: RENAL CELL CARCINOMA
     Dosage: 2.5 MG, QD
     Route: 048
  3. LENVATINIB [Suspect]
     Active Substance: LENVATINIB
     Indication: RENAL CELL CARCINOMA
     Dosage: 18 MG, QD
     Route: 048
     Dates: start: 20170609

REACTIONS (24)
  - Metastases to bone [Unknown]
  - Constipation [Unknown]
  - Dysgeusia [Unknown]
  - Headache [Unknown]
  - Anaemia [Unknown]
  - Stress [Unknown]
  - Obesity [Unknown]
  - Pain [Unknown]
  - Dyspnoea [Recovered/Resolved]
  - Diarrhoea [Unknown]
  - Abdominal pain upper [Recovered/Resolved]
  - Decubitus ulcer [Unknown]
  - Cough [Unknown]
  - Nausea [Unknown]
  - Heart rate increased [Unknown]
  - Fatigue [Unknown]
  - Arthralgia [Unknown]
  - Appetite disorder [Unknown]
  - Blood calcium decreased [Unknown]
  - Dyspepsia [Unknown]
  - Anxiety [Unknown]
  - Nocturia [Unknown]
  - Chest pain [Unknown]
  - Depression [Unknown]

NARRATIVE: CASE EVENT DATE: 20170918
